FAERS Safety Report 22079825 (Version 4)
Quarter: 2023Q2

REPORT INFORMATION
  Report Type: Spontaneous
  Country: US (occurrence: US)
  Receive Date: 20230309
  Receipt Date: 20230412
  Transmission Date: 20230722
  Serious: No
  Sender: FDA-Public Use
  Company Number: US-BRISTOL-MYERS SQUIBB COMPANY-2023-030757

PATIENT
  Age: 52 Year
  Sex: Female

DRUGS (2)
  1. ORENCIA [Suspect]
     Active Substance: ABATACEPT
     Indication: Psoriatic arthropathy
     Dosage: ONGOING
     Route: 058
     Dates: start: 202301
  2. VYVANSE [Suspect]
     Active Substance: LISDEXAMFETAMINE DIMESYLATE
     Indication: Product used for unknown indication

REACTIONS (7)
  - Blood pressure measurement [Unknown]
  - Infection [Unknown]
  - Off label use [Unknown]
  - Erythema [Unknown]
  - Pruritus [Unknown]
  - Skin burning sensation [Unknown]
  - Blood testosterone decreased [Unknown]
